FAERS Safety Report 15958295 (Version 1)
Quarter: 2019Q1

REPORT INFORMATION
  Report Type: Spontaneous
  Country: ES (occurrence: ES)
  Receive Date: 20190213
  Receipt Date: 20190213
  Transmission Date: 20190417
  Serious: Yes (Death)
  Sender: FDA-Public Use
  Company Number: PHHY2019ES032779

PATIENT
  Age: 46 Year
  Sex: Male

DRUGS (6)
  1. PARACETAMOL [Concomitant]
     Active Substance: ACETAMINOPHEN
     Indication: PRODUCT USED FOR UNKNOWN INDICATION
     Dosage: UNK
     Route: 065
  2. NAPROXENO [Suspect]
     Active Substance: NAPROXEN
     Indication: ARTHROPATHY
     Dosage: 17.5 MG, QW
     Route: 030
     Dates: start: 20180531
  3. NAPROXENO [Concomitant]
     Active Substance: NAPROXEN
     Indication: ARTHROPATHY
     Dosage: 500 MG, Q12H
     Route: 048
     Dates: start: 20180530
  4. SECUKINUMAB. [Suspect]
     Active Substance: SECUKINUMAB
     Indication: ARTHROPATHY
     Dosage: 150 MG, QMO
     Route: 058
     Dates: start: 20181008
  5. FOLIC ACID. [Concomitant]
     Active Substance: FOLIC ACID
     Indication: PRODUCT USED FOR UNKNOWN INDICATION
     Dosage: UNK
     Route: 065
  6. BRIVUDINA [Suspect]
     Active Substance: BRIVUDINE
     Indication: HERPES ZOSTER
     Dosage: 125 MG, Q24H
     Route: 048
     Dates: start: 20190125, end: 20190125

REACTIONS (1)
  - Necrotising fasciitis [Fatal]

NARRATIVE: CASE EVENT DATE: 20190125
